FAERS Safety Report 19546645 (Version 1)
Quarter: 2021Q3

REPORT INFORMATION
  Report Type: Spontaneous
  Country: FR (occurrence: FR)
  Receive Date: 20210715
  Receipt Date: 20210715
  Transmission Date: 20211014
  Serious: Yes (Other)
  Sender: FDA-Public Use
  Company Number: FR-BRISTOL-MYERS SQUIBB COMPANY-BMS-2021-067666

PATIENT
  Age: 66 Year
  Sex: Male

DRUGS (1)
  1. OPDIVO [Suspect]
     Active Substance: NIVOLUMAB
     Indication: BRONCHIAL CARCINOMA
     Dosage: 240 MILLIGRAM EVERY 15 DAYS
     Route: 042
     Dates: start: 200706, end: 202102

REACTIONS (2)
  - Off label use [Unknown]
  - Pancreatic failure [Recovered/Resolved]

NARRATIVE: CASE EVENT DATE: 202102
